FAERS Safety Report 19353149 (Version 1)
Quarter: 2021Q2

REPORT INFORMATION
  Report Type: Report from Study
  Country: US (occurrence: US)
  Receive Date: 20210601
  Receipt Date: 20210601
  Transmission Date: 20210717
  Serious: Yes (Disabling)
  Sender: FDA-Public Use
  Company Number: US-APELLIS PHARMACEUTICALS-2112206

PATIENT
  Age: 77 Year
  Sex: Male
  Weight: 72.8 kg

DRUGS (3)
  1. EMPAVELI [Suspect]
     Active Substance: PEGCETACOPLAN
     Indication: DRY AGE-RELATED MACULAR DEGENERATION
     Dates: start: 20190522, end: 20201102
  2. TIMOLOL MALEATE. [Concomitant]
     Active Substance: TIMOLOL MALEATE
     Dates: start: 20210109
  3. PRESERVISION AREDS 2 [Concomitant]
     Active Substance: MINERALS\VITAMINS
     Route: 048
     Dates: start: 2013

REACTIONS (2)
  - Visual acuity reduced [Recovered/Resolved]
  - Uveitis [Recovered/Resolved]

NARRATIVE: CASE EVENT DATE: 20210108
